FAERS Safety Report 9531110 (Version 2)
Quarter: 2013Q4

REPORT INFORMATION
  Report Type: Spontaneous
  Country: JP (occurrence: JP)
  Receive Date: 20130918
  Receipt Date: 20131227
  Transmission Date: 20140711
  Serious: Yes (Hospitalization, Other)
  Sender: FDA-Public Use
  Company Number: JP-009507513-1309JPN006411

PATIENT
  Age: 85 Year
  Sex: Female

DRUGS (5)
  1. PREMINENT TABLETS [Suspect]
     Indication: HYPERTENSION
     Dosage: 1 DF, QD
     Route: 048
     Dates: start: 20130706, end: 20130710
  2. NORVASC [Concomitant]
     Dosage: DAILY DOSAGE UNKNOWN
     Route: 048
  3. SERENAL (OXAZOLAM) [Concomitant]
     Dosage: DAILY DOSAGE UNKNOWN
     Route: 048
  4. WYPAX [Concomitant]
     Dosage: DAILY DOSAGE UNKNOWN
     Route: 048
  5. JUNCHO-TO [Concomitant]
     Dosage: DAILY DOSAGE UNKNOWN
     Route: 048

REACTIONS (3)
  - Rhabdomyolysis [Recovered/Resolved]
  - Hyponatraemia [Recovered/Resolved]
  - Nausea [Unknown]
